FAERS Safety Report 5540027-X (Version None)
Quarter: 2007Q4

REPORT INFORMATION
  Report Type: 
  Country: None (occurrence: None)
  Receive Date: 20071208
  Receipt Date: 20070526
  Transmission Date: 20080405
  Serious: No
  Sender: FDA-Public Use
  Company Number: US-AMGEN-KDL226524

PATIENT
  Sex: Female
  Weight: 68.1 kg

DRUGS (7)
  1. ENBREL [Suspect]
     Indication: RHEUMATOID ARTHRITIS
     Route: 058
     Dates: start: 20040101
  2. LISINOPRIL [Concomitant]
  3. INSULIN [Concomitant]
  4. LIPITOR [Concomitant]
  5. METHOTREXATE [Concomitant]
  6. LEUCOVORIN CALCIUM [Concomitant]
  7. FOLIC ACID [Concomitant]

REACTIONS (1)
  - INJECTION SITE PAIN [None]
